FAERS Safety Report 23602473 (Version 2)
Quarter: 2024Q1

REPORT INFORMATION
  Report Type: Spontaneous
  Country: US (occurrence: US)
  Receive Date: 20240306
  Receipt Date: 20240313
  Transmission Date: 20240409
  Serious: No
  Sender: FDA-Public Use
  Company Number: US-PFIZER INC-202400056347

PATIENT
  Age: 68 Year
  Sex: Female

DRUGS (1)
  1. PAXLOVID [Suspect]
     Active Substance: NIRMATRELVIR\RITONAVIR
     Indication: COVID-19 treatment
     Dosage: UNK
     Dates: start: 20240223, end: 20240228

REACTIONS (6)
  - Pyrexia [Not Recovered/Not Resolved]
  - Pain [Not Recovered/Not Resolved]
  - Cough [Not Recovered/Not Resolved]
  - Asthenia [Not Recovered/Not Resolved]
  - Decreased appetite [Not Recovered/Not Resolved]
  - Condition aggravated [Not Recovered/Not Resolved]

NARRATIVE: CASE EVENT DATE: 20240301
